FAERS Safety Report 9619937 (Version 1)
Quarter: 2013Q4

REPORT INFORMATION
  Report Type: Spontaneous
  Country: IT (occurrence: IT)
  Receive Date: 20131014
  Receipt Date: 20131014
  Transmission Date: 20140711
  Serious: Yes (Hospitalization)
  Sender: FDA-Public Use
  Company Number: IT-GE HEALTHCARE MEDICAL DIAGNOSTICS-VISP-PR-1310S-0861

PATIENT
  Age: 66 Year
  Sex: Male

DRUGS (8)
  1. VISIPAQUE [Suspect]
     Indication: PRODUCT USED FOR UNKNOWN INDICATION
     Route: 042
     Dates: start: 20130128, end: 20130128
  2. VISIPAQUE [Suspect]
     Indication: DIAGNOSTIC PROCEDURE
  3. ACETYLSALICYLIC ACID [Concomitant]
  4. EFYENT [Concomitant]
  5. TORVAST [Concomitant]
  6. TRIATEC [Concomitant]
  7. CONGESCOR [Concomitant]
  8. ZANTAC [Concomitant]

REACTIONS (2)
  - Dermatitis exfoliative [Recovered/Resolved]
  - Tongue oedema [Recovered/Resolved]
